FAERS Safety Report 4989599-4 (Version None)
Quarter: 2006Q2

REPORT INFORMATION
  Report Type: 
  Country: None (occurrence: None)
  Receive Date: 20060502
  Receipt Date: 20060421
  Transmission Date: 20061013
  Serious: Yes (Hospitalization)
  Sender: FDA-Public Use
  Company Number: US-MERCK-0604USA03408

PATIENT
  Age: 65 Year
  Sex: Female

DRUGS (7)
  1. VIOXX [Suspect]
     Indication: ARTHRITIS
     Route: 048
     Dates: start: 20041001
  2. LOTREL [Concomitant]
     Route: 065
  3. AVANDIA [Concomitant]
     Route: 065
  4. ZOLOFT [Concomitant]
     Route: 065
  5. RISPERDAL [Concomitant]
     Route: 065
  6. ARTHROTEC [Concomitant]
     Route: 065
  7. POTASSIUM (UNSPECIFIED) [Concomitant]
     Route: 065

REACTIONS (1)
  - LOSS OF CONTROL OF LEGS [None]
